FAERS Safety Report 4611101-7 (Version None)
Quarter: 2005Q2

REPORT INFORMATION
  Report Type: 
  Country: None (occurrence: None)
  Receive Date: 20050314
  Receipt Date: 20040921
  Transmission Date: 20051028
  Serious: Yes (Hospitalization)
  Sender: FDA-Public Use
  Company Number: USA040773318

PATIENT
  Age: 83 Year
  Sex: Female
  Weight: 75 kg

DRUGS (5)
  1. GEMZAR [Suspect]
     Indication: BLADDER CANCER
     Dosage: 500 MG/M2
     Dates: start: 20040612, end: 20040612
  2. CISPLATIN [Concomitant]
  3. TIMOLOL MALEATE [Concomitant]
  4. BACTRIM [Concomitant]
  5. PYRIDIUM PLUS [Concomitant]

REACTIONS (1)
  - DYSPNOEA [None]
